FAERS Safety Report 5804483-1 (Version None)
Quarter: 2008Q3

REPORT INFORMATION
  Report Type: 
  Country: None (occurrence: None)
  Receive Date: 20080709
  Receipt Date: 20080627
  Transmission Date: 20090109
  Serious: Yes (Hospitalization)
  Sender: FDA-Public Use
  Company Number: B0527281A

PATIENT
  Age: 53 Year
  Sex: Male

DRUGS (4)
  1. AUGMENTIN '125' [Suspect]
     Route: 042
     Dates: start: 20071201, end: 20080101
  2. TAVANIC [Suspect]
     Route: 042
     Dates: start: 20071201, end: 20080101
  3. AMIKACIN [Suspect]
     Route: 042
     Dates: start: 20071201, end: 20080101
  4. ANTIBIOTICS (UNSPECIFIED) [Concomitant]
     Indication: DENTAL OPERATION
     Route: 065
     Dates: start: 20080101

REACTIONS (5)
  - ABDOMINAL PAIN [None]
  - CHILLS [None]
  - CLOSTRIDIUM DIFFICILE COLITIS [None]
  - INFLAMMATION [None]
  - LEUKOCYTOSIS [None]
